FAERS Safety Report 6378055-7 (Version None)
Quarter: 2009Q3

REPORT INFORMATION
  Report Type: 
  Country: None (occurrence: None)
  Receive Date: 20090925
  Receipt Date: 20090924
  Transmission Date: 20100115
  Serious: Yes (Death, Life-Threatening, Hospitalization)
  Sender: FDA-Public Use
  Company Number: JP-WYE-H10957609

PATIENT
  Sex: Male
  Weight: 60 kg

DRUGS (7)
  1. MYLOTARG [Suspect]
     Indication: ACUTE MYELOID LEUKAEMIA
     Route: 041
     Dates: start: 20090826, end: 20090826
  2. LASIX [Concomitant]
     Route: 041
     Dates: start: 20090905, end: 20090910
  3. ITRIZOLE [Concomitant]
     Indication: PROPHYLAXIS
     Route: 048
     Dates: start: 20090826, end: 20090904
  4. ITRIZOLE [Concomitant]
     Route: 041
     Dates: start: 20090905, end: 20090910
  5. MAXIPIME [Concomitant]
     Route: 041
     Dates: start: 20090902, end: 20090910
  6. SOLU-MEDROL [Concomitant]
     Route: 041
     Dates: start: 20090910, end: 20090910
  7. SOLU-MEDROL [Concomitant]
     Route: 041
     Dates: start: 20090904, end: 20090906

REACTIONS (4)
  - ACUTE MYELOID LEUKAEMIA RECURRENT [None]
  - ASCITES [None]
  - HEPATIC FUNCTION ABNORMAL [None]
  - PULMONARY HAEMORRHAGE [None]
